FAERS Safety Report 9845521 (Version 1)
Quarter: 2014Q1

REPORT INFORMATION
  Report Type: Spontaneous
  Country: US (occurrence: None)
  Receive Date: 20140123
  Receipt Date: 20140123
  Transmission Date: 20141002
  Serious: Yes (Other)
  Sender: FDA-Public Use
  Company Number: 14AE003

PATIENT
  Sex: Male

DRUGS (1)
  1. SENNA [Suspect]
     Indication: CONSTIPATION
     Dosage: 2 BY MOUTH, DAILY
     Dates: start: 20131202, end: 20140107

REACTIONS (1)
  - Abdominal pain upper [None]
